FAERS Safety Report 5728109-0 (Version None)
Quarter: 2008Q2

REPORT INFORMATION
  Report Type: 
  Country: None (occurrence: None)
  Receive Date: 20080505
  Receipt Date: 20080428
  Transmission Date: 20081010
  Serious: Yes (Death)
  Sender: FDA-Public Use
  Company Number: US-BAXTER-2008BH004458

PATIENT
  Age: 75 Year
  Sex: Male
  Weight: 81 kg

DRUGS (4)
  1. HEPARIN SODIUM 5,000 UNITS IN DEXTROSE 5% [Suspect]
     Indication: ANGIOPLASTY
     Route: 042
     Dates: start: 20031219
  2. HEPARIN SODIUM 5,000 UNITS IN DEXTROSE 5% [Suspect]
     Indication: PROPHYLAXIS
     Route: 042
     Dates: start: 20031219
  3. COUMADIN [Concomitant]
     Indication: DRUG USE FOR UNKNOWN INDICATION
     Route: 065
  4. ^UPTON^ DISC [Concomitant]
     Indication: DRUG USE FOR UNKNOWN INDICATION
     Route: 065

REACTIONS (3)
  - CARDIAC FAILURE CONGESTIVE [None]
  - HEPARIN-INDUCED THROMBOCYTOPENIA [None]
  - RESPIRATORY FAILURE [None]
